FAERS Safety Report 23980385 (Version 2)
Quarter: 2024Q2

REPORT INFORMATION
  Report Type: Spontaneous
  Country: US (occurrence: US)
  Receive Date: 20240617
  Receipt Date: 20240617
  Transmission Date: 20240716
  Serious: Yes (Other)
  Sender: FDA-Public Use
  Company Number: US-SERB S.A.S.-2158190

PATIENT
  Age: 67 Year
  Sex: Male

DRUGS (4)
  1. VISTOGARD [Suspect]
     Active Substance: URIDINE TRIACETATE
     Indication: Diarrhoea
  2. VISTOGARD [Suspect]
     Active Substance: URIDINE TRIACETATE
     Indication: Chemotherapy toxicity attenuation
  3. CAPECITABINE [Suspect]
     Active Substance: CAPECITABINE
  4. GEMCITABINE [Suspect]
     Active Substance: GEMCITABINE

REACTIONS (1)
  - Hypokalaemia [Unknown]
